FAERS Safety Report 6286881-8 (Version None)
Quarter: 2009Q3

REPORT INFORMATION
  Report Type: 
  Country: None (occurrence: None)
  Receive Date: 20090727
  Receipt Date: 20090727
  Transmission Date: 20100115
  Serious: Yes (Life-Threatening)
  Sender: FDA-Public Use
  Company Number: None

PATIENT
  Age: 48 Year
  Sex: Female
  Weight: 56.6996 kg

DRUGS (2)
  1. FLUDROCORTISONE ACETATE TAB [Suspect]
     Indication: HYPOALDOSTERONISM
     Dosage: 1/2 PILL 6 AM AND 1/2 PILL 6 PM 1 WHOLE PILL 6 AM AND 1 PILL 6 PM
     Dates: start: 20090701
  2. FLUDROCORTISONE ACETATE TAB [Suspect]
     Indication: HYPOALDOSTERONISM
     Dosage: 1/2 PILL 6 AM AND 1/2 PILL 6 PM 1 WHOLE PILL 6 AM AND 1 PILL 6 PM
     Dates: start: 20090702

REACTIONS (6)
  - AMNESIA [None]
  - ASTHENIA [None]
  - DISORIENTATION [None]
  - DRUG INEFFECTIVE [None]
  - FATIGUE [None]
  - PRODUCT SUBSTITUTION ISSUE [None]
